FAERS Safety Report 20018197 (Version 1)
Quarter: 2021Q4

REPORT INFORMATION
  Report Type: Spontaneous
  Country: US (occurrence: US)
  Receive Date: 20211101
  Receipt Date: 20211101
  Transmission Date: 20220304
  Serious: Yes (Hospitalization, Other)
  Sender: FDA-Public Use
  Company Number: US-SA-SAC20211029000176

PATIENT
  Sex: Male

DRUGS (2)
  1. PLAVIX [Suspect]
     Active Substance: CLOPIDOGREL BISULFATE
     Dosage: UNK
     Route: 065
  2. ELIQUIS [Suspect]
     Active Substance: APIXABAN
     Dosage: UNK
     Dates: start: 20211015

REACTIONS (6)
  - Cardiac cirrhosis [Unknown]
  - Swelling [Unknown]
  - Post procedural contusion [Unknown]
  - Procedural pain [Unknown]
  - Joint swelling [Unknown]
  - Pruritus [Unknown]
